FAERS Safety Report 10877464 (Version 1)
Quarter: 2015Q1

REPORT INFORMATION
  Report Type: Spontaneous
  Country: FR (occurrence: None)
  Receive Date: 20150224
  Receipt Date: 20150224
  Transmission Date: 20150721
  Serious: Yes (Hospitalization, Other)
  Sender: FDA-Public Use
  Company Number: 2015FE00551

PATIENT
  Age: 74 Year
  Sex: Male

DRUGS (1)
  1. FIRMAGON [Suspect]
     Active Substance: DEGARELIX ACETATE
     Indication: PROSTATE CANCER
     Route: 058
     Dates: start: 201502

REACTIONS (4)
  - Pain in extremity [None]
  - Vertigo [None]
  - Paraesthesia [None]
  - Malaise [None]

NARRATIVE: CASE EVENT DATE: 201502
